FAERS Safety Report 5856763-1 (Version None)
Quarter: 2008Q3

REPORT INFORMATION
  Report Type: 
  Country: None (occurrence: None)
  Receive Date: 20080821
  Receipt Date: 20080807
  Transmission Date: 20090109
  Serious: Yes (Hospitalization)
  Sender: FDA-Public Use
  Company Number: SPV1-2008-01656

PATIENT
  Age: 68 Year
  Sex: Female

DRUGS (6)
  1. ANAGRELIDE HYDROCHLORIDE [Suspect]
     Indication: ESSENTIAL THROMBOCYTHAEMIA
     Dosage: 0.5 MG, 1X/DAY:QD,
     Dates: start: 20070601, end: 20080401
  2. SEGURIL /00032601/ (FUROSEMIDE) TABLET [Concomitant]
  3. PLAVIX /01220701/ (CLOPIDOGREL) TABLET [Concomitant]
  4. AMLODIPINE [Concomitant]
  5. LOSARTAN POTASSIUM [Concomitant]
  6. DIGOXIN [Concomitant]

REACTIONS (5)
  - CARDIAC FAILURE [None]
  - DILATATION VENTRICULAR [None]
  - PORTAL HYPERTENSION [None]
  - PULMONARY HYPERTENSION [None]
  - RIGHT ATRIAL DILATATION [None]
